FAERS Safety Report 15728981 (Version 7)
Quarter: 2019Q2

REPORT INFORMATION
  Report Type: Report from Study
  Country: US (occurrence: US)
  Receive Date: 20181217
  Receipt Date: 20190426
  Transmission Date: 20190711
  Serious: Yes (Hospitalization, Other)
  Sender: FDA-Public Use
  Company Number: US-PFIZER INC-2018489180

PATIENT
  Age: 62 Year
  Sex: Female

DRUGS (5)
  1. IBRANCE [Suspect]
     Active Substance: PALBOCICLIB
     Dosage: UNK
     Route: 048
     Dates: start: 20181101, end: 20181112
  2. IBRANCE [Suspect]
     Active Substance: PALBOCICLIB
     Indication: BREAST CANCER STAGE IV
     Dosage: 125 MG, CYCLIC (DAILY 21 DAYS ON AND 7 DAYS OFF)
     Route: 048
     Dates: start: 20181029, end: 20181031
  3. IBRANCE [Suspect]
     Active Substance: PALBOCICLIB
     Dosage: 100 MG, CYCLIC (DAILY 21 DAYS ON AND 7 DAYS OFF)
     Route: 048
     Dates: start: 20181203
  4. IBRANCE [Suspect]
     Active Substance: PALBOCICLIB
     Dosage: 125 MG, CYCLIC,(DAILY X 21 DAYS, OFF X 7 DAYS)
     Route: 048
     Dates: start: 20181029, end: 20181101
  5. FASLODEX [Concomitant]
     Active Substance: FULVESTRANT
     Indication: BREAST CANCER FEMALE
     Dosage: 500 MG, MONTHLY,(EVERY)
     Route: 030
     Dates: start: 20181029

REACTIONS (17)
  - Neutropenia [Unknown]
  - Musculoskeletal pain [Recovered/Resolved]
  - Thrombocytopenia [Not Recovered/Not Resolved]
  - Pulmonary thrombosis [Unknown]
  - Chest pain [Recovered/Resolved]
  - Intentional product misuse [Unknown]
  - Bone marrow failure [Recovering/Resolving]
  - Choking [Unknown]
  - Pruritus [Recovered/Resolved]
  - Ligament sprain [Recovered/Resolved]
  - Fall [Recovered/Resolved]
  - Leukopenia [Recovering/Resolving]
  - Anaemia [Recovering/Resolving]
  - Oesophageal stenosis [Unknown]
  - Blood urine present [Unknown]
  - Hair growth abnormal [Unknown]
  - Therapeutic response unexpected [Unknown]

NARRATIVE: CASE EVENT DATE: 2018
